FAERS Safety Report 25351918 (Version 1)
Quarter: 2025Q2

REPORT INFORMATION
  Report Type: Spontaneous
  Country: US (occurrence: None)
  Receive Date: 20250522
  Receipt Date: 20250522
  Transmission Date: 20250716
  Serious: Yes (Disabling)
  Sender: FDA-CTU
  Company Number: None

PATIENT
  Age: 33 Year
  Sex: Female
  Weight: 60.75 kg

DRUGS (2)
  1. AUGMENTIN [Suspect]
     Active Substance: AMOXICILLIN\CLAVULANATE POTASSIUM
     Indication: Tooth abscess
     Route: 048
     Dates: start: 20250520, end: 20250522
  2. CREATINE [Concomitant]
     Active Substance: CREATINE

REACTIONS (8)
  - Insomnia [None]
  - Agitation [None]
  - Anxiety [None]
  - Heart rate increased [None]
  - Thinking abnormal [None]
  - Memory impairment [None]
  - Psychotic disorder [None]
  - Incision site swelling [None]

NARRATIVE: CASE EVENT DATE: 20250520
